FAERS Safety Report 6763589-3 (Version None)
Quarter: 2010Q2

REPORT INFORMATION
  Report Type: 
  Country: None (occurrence: None)
  Receive Date: 20100610
  Receipt Date: 20100604
  Transmission Date: 20101027
  Serious: Yes (Hospitalization)
  Sender: FDA-Public Use
  Company Number: US-ROXANE LABORATORIES, INC.-2010-RO-00685RO

PATIENT
  Sex: Male

DRUGS (4)
  1. LITHIUM CARBONATE CAP [Suspect]
     Indication: AUTISM
     Route: 048
  2. LITHIUM CARBONATE CAP [Suspect]
     Indication: ATTENTION DEFICIT/HYPERACTIVITY DISORDER
  3. LITHIUM CARBONATE CAP [Suspect]
     Indication: ABNORMAL BEHAVIOUR
  4. RISPERDAL [Concomitant]

REACTIONS (3)
  - ABNORMAL BEHAVIOUR [None]
  - DIARRHOEA HAEMORRHAGIC [None]
  - LIQUID PRODUCT PHYSICAL ISSUE [None]
